FAERS Safety Report 10175055 (Version 1)
Quarter: 2014Q2

REPORT INFORMATION
  Report Type: Spontaneous
  Country: DE (occurrence: DE)
  Receive Date: 20140515
  Receipt Date: 20140515
  Transmission Date: 20141212
  Serious: Yes (Death)
  Sender: FDA-Public Use
  Company Number: DE-ELI_LILLY_AND_COMPANY-DE201405003669

PATIENT
  Age: 76 Year
  Sex: Male
  Weight: 80 kg

DRUGS (3)
  1. EFIENT [Suspect]
     Indication: STENT PLACEMENT
     Dosage: 60 MG, SINGLE
     Dates: start: 20120213, end: 20120213
  2. EFIENT [Suspect]
     Dosage: 10 MG, QD
     Route: 048
     Dates: start: 20120214, end: 20120301
  3. ASPIRIN [Concomitant]
     Dosage: 100 MG, QD
     Route: 048

REACTIONS (1)
  - Death [Fatal]
